FAERS Safety Report 11589175 (Version 1)
Quarter: 2015Q4

REPORT INFORMATION
  Report Type: Spontaneous
  Country: US (occurrence: None)
  Receive Date: 20151001
  Receipt Date: 20151001
  Transmission Date: 20160304
  Serious: No
  Sender: FDA-Public Use
  Company Number: None

PATIENT
  Age: 50 Year
  Sex: Female

DRUGS (2)
  1. HERCEPTIN [Concomitant]
     Active Substance: TRASTUZUMAB
  2. GRANIX [Suspect]
     Active Substance: TBO-FILGRASTIM
     Indication: NEUTROPENIA
     Dosage: QD FOR 7D AFTER CHEM
     Route: 058
     Dates: start: 20150811

REACTIONS (1)
  - Drug dose omission [None]

NARRATIVE: CASE EVENT DATE: 201509
